FAERS Safety Report 4513778-3 (Version None)
Quarter: 2004Q4

REPORT INFORMATION
  Report Type: 
  Country: None (occurrence: None)
  Receive Date: 20041130
  Receipt Date: 20041025
  Transmission Date: 20050328
  Serious: No
  Sender: FDA-Public Use
  Company Number: US-GLAXOSMITHKLINE-A0531182A

PATIENT
  Age: 43 Year
  Sex: Male

DRUGS (3)
  1. WELLBUTRIN XL [Suspect]
     Indication: DEPRESSION
     Dosage: 300MG PER DAY
     Route: 048
  2. LEXAPRO [Concomitant]
  3. IBUPROFEN [Concomitant]

REACTIONS (3)
  - INSOMNIA [None]
  - LIBIDO DECREASED [None]
  - SOCIAL AVOIDANT BEHAVIOUR [None]
